FAERS Safety Report 4490480-8 (Version None)
Quarter: 2004Q4

REPORT INFORMATION
  Report Type: 
  Country: None (occurrence: None)
  Receive Date: 20041102
  Receipt Date: 20041004
  Transmission Date: 20050328
  Serious: Yes (Death)
  Sender: FDA-Public Use
  Company Number: PT-BRISTOL-MYERS SQUIBB COMPANY-12725677

PATIENT

DRUGS (3)
  1. CARBOPLATIN [Suspect]
     Indication: LUNG NEOPLASM MALIGNANT
  2. PACLITAXEL [Suspect]
     Indication: LUNG NEOPLASM MALIGNANT
  3. RHUMAB-VEGF [Suspect]
     Indication: LUNG NEOPLASM MALIGNANT
     Dosage: 7.5 OR 15 MG/KG

REACTIONS (1)
  - HAEMOPTYSIS [None]
